FAERS Safety Report 14179109 (Version 3)
Quarter: 2018Q3

REPORT INFORMATION
  Report Type: Report from Study
  Country: JP (occurrence: JP)
  Receive Date: 20171110
  Receipt Date: 20180808
  Transmission Date: 20181010
  Serious: Yes (Other)
  Sender: FDA-Public Use
  Company Number: JP-OTSUKA-2016_024325

PATIENT
  Age: 33 Year
  Sex: Male
  Weight: 74.1 kg

DRUGS (9)
  1. TOLVAPTAN [Suspect]
     Active Substance: TOLVAPTAN
     Indication: CONGENITAL CYSTIC KIDNEY DISEASE
     Dosage: 60 MG, DAILY DOSE (DIVIDED INTO 2 DOSES)
     Route: 048
     Dates: start: 20151029, end: 20160609
  2. TOLVAPTAN [Suspect]
     Active Substance: TOLVAPTAN
     Dosage: 7.5 MG, QD
     Route: 048
     Dates: start: 20170630, end: 20170817
  3. TOLVAPTAN [Suspect]
     Active Substance: TOLVAPTAN
     Dosage: 90 MG, DAILY DOSE (DIVIDED INTO 2 DOSES)
     Route: 048
     Dates: start: 20161209, end: 20161222
  4. TOLVAPTAN [Suspect]
     Active Substance: TOLVAPTAN
     Dosage: 30 MG, DAILY DOSE (DIVIDED INTO 2 DOSES)
     Route: 048
     Dates: start: 20171110
  5. TOLVAPTAN [Suspect]
     Active Substance: TOLVAPTAN
     Dosage: 120 MG, DAILY DOSE (DIVIDED INTO 2 DOSES)
     Route: 048
     Dates: start: 20161014, end: 20161208
  6. RENIVACE [Concomitant]
     Active Substance: ENALAPRIL
     Indication: CONGESTIVE CARDIOMYOPATHY
     Dosage: 2.5 MG, QD
     Route: 048
     Dates: start: 20151222
  7. TOLVAPTAN [Suspect]
     Active Substance: TOLVAPTAN
     Dosage: 15 MG, QD
     Route: 048
     Dates: start: 20170818, end: 20171109
  8. CARVEDILOL. [Concomitant]
     Active Substance: CARVEDILOL
     Indication: CONGESTIVE CARDIOMYOPATHY
     Dosage: 20 MG, QD
     Route: 048
     Dates: start: 20160611
  9. TOLVAPTAN [Suspect]
     Active Substance: TOLVAPTAN
     Dosage: 90 MG, DAILY DOSE (DIVIDED INTO 2 DOSES)
     Route: 048
     Dates: start: 20160610, end: 20161013

REACTIONS (4)
  - Inappropriate schedule of drug administration [Unknown]
  - Hepatic function abnormal [Recovered/Resolved]
  - Hypernatraemia [Recovering/Resolving]
  - Hepatic function abnormal [Recovering/Resolving]

NARRATIVE: CASE EVENT DATE: 20151031
